FAERS Safety Report 7023642-6 (Version None)
Quarter: 2010Q3

REPORT INFORMATION
  Report Type: 
  Country: None (occurrence: None)
  Receive Date: 20100929
  Receipt Date: 20100929
  Transmission Date: 20110219
  Serious: No
  Sender: FDA-Public Use
  Company Number: None

PATIENT
  Age: 50 Year
  Sex: Male
  Weight: 75.7507 kg

DRUGS (1)
  1. OXYCONTIN [Suspect]
     Indication: BACK PAIN
     Dosage: 40MG 3 TIMES A DAY PO
     Route: 048
     Dates: start: 20090215, end: 20100928

REACTIONS (3)
  - DIARRHOEA [None]
  - HEADACHE [None]
  - INADEQUATE ANALGESIA [None]
